FAERS Safety Report 22773195 (Version 2)
Quarter: 2023Q4

REPORT INFORMATION
  Report Type: Spontaneous
  Country: US (occurrence: US)
  Receive Date: 20230801
  Receipt Date: 20231025
  Transmission Date: 20240110
  Serious: No
  Sender: FDA-Public Use
  Company Number: US-SA-SAC20230731001477

PATIENT
  Sex: Male
  Weight: 90 kg

DRUGS (2)
  1. DUPIXENT [Suspect]
     Active Substance: DUPILUMAB
     Indication: Dermatitis atopic
     Dosage: 300 MG, QOW
     Route: 058
  2. DUPIXENT [Suspect]
     Active Substance: DUPILUMAB
     Indication: Prurigo
     Dosage: 300 MG, Q2M
     Route: 058

REACTIONS (1)
  - Intentional product misuse [Unknown]
